FAERS Safety Report 12404762 (Version 14)
Quarter: 2018Q1

REPORT INFORMATION
  Report Type: Spontaneous
  Country: US (occurrence: US)
  Receive Date: 20160525
  Receipt Date: 20180302
  Transmission Date: 20180508
  Serious: Yes (Hospitalization, Other)
  Sender: FDA-Public Use
  Company Number: US-BIOMARINAP-US-2016-109914

PATIENT
  Sex: Female

DRUGS (3)
  1. ALDURAZYME [Suspect]
     Active Substance: LARONIDASE
     Indication: MUCOPOLYSACCHARIDOSIS I
     Dosage: UNK, QOW
     Route: 041
     Dates: start: 20100310
  2. VITAMIN C [Concomitant]
     Active Substance: ASCORBIC ACID
     Indication: PRODUCT USED FOR UNKNOWN INDICATION
  3. KEPPRA [Concomitant]
     Active Substance: LEVETIRACETAM
     Indication: PRODUCT USED FOR UNKNOWN INDICATION

REACTIONS (19)
  - Respiratory failure [Not Recovered/Not Resolved]
  - Pallor [Recovering/Resolving]
  - Seizure [Not Recovered/Not Resolved]
  - Movement disorder [Not Recovered/Not Resolved]
  - Unevaluable event [Recovering/Resolving]
  - Device issue [Not Recovered/Not Resolved]
  - Speech disorder [Recovered/Resolved]
  - Hypoaesthesia [Not Recovered/Not Resolved]
  - Malaise [Unknown]
  - Eye disorder [Not Recovered/Not Resolved]
  - Hypotension [Recovering/Resolving]
  - Muscular weakness [Recovering/Resolving]
  - Decubitus ulcer [Recovering/Resolving]
  - Burkholderia cepacia complex infection [Not Recovered/Not Resolved]
  - Weight increased [Recovering/Resolving]
  - Swelling [Not Recovered/Not Resolved]
  - Dysphagia [Recovered/Resolved]
  - Pain in extremity [Not Recovered/Not Resolved]
  - Nervous system disorder [Not Recovered/Not Resolved]
